FAERS Safety Report 9343112 (Version 4)
Quarter: 2014Q2

REPORT INFORMATION
  Report Type: Spontaneous
  Country: US (occurrence: US)
  Receive Date: 20130611
  Receipt Date: 20140415
  Transmission Date: 20141212
  Serious: No
  Sender: FDA-Public Use
  Company Number: US-009507513-1306USA001423

PATIENT
  Sex: Male

DRUGS (3)
  1. PROSCAR [Suspect]
     Indication: PROSTATOMEGALY
     Dosage: 5 MG, UNK
     Route: 048
     Dates: start: 2002, end: 2004
  2. FINASTERIDE [Suspect]
     Indication: PROSTATOMEGALY
     Dosage: 5 MG, UNK
     Route: 048
     Dates: start: 20101119, end: 2012
  3. FINASTERIDE [Suspect]
     Indication: PROSTATOMEGALY
     Dosage: 5 MG, UNK
     Route: 048
     Dates: start: 2011, end: 2012

REACTIONS (5)
  - Erectile dysfunction [Unknown]
  - Sexual dysfunction [Unknown]
  - Loss of libido [Unknown]
  - Sexual dysfunction [Unknown]
  - Endocrine disorder [Unknown]
